FAERS Safety Report 6852248-4 (Version None)
Quarter: 2010Q3

REPORT INFORMATION
  Report Type: 
  Country: None (occurrence: None)
  Receive Date: 20100717
  Receipt Date: 20071109
  Transmission Date: 20110219
  Serious: No
  Sender: FDA-Public Use
  Company Number: US-PFIZER INC-2007097052

PATIENT
  Sex: Female
  Weight: 46.3 kg

DRUGS (2)
  1. CHANTIX [Suspect]
     Indication: SMOKING CESSATION THERAPY
     Route: 048
     Dates: start: 20071104
  2. ZOLOFT [Concomitant]
     Dosage: 200MG,DAILY

REACTIONS (6)
  - DREAMY STATE [None]
  - DYSGEUSIA [None]
  - FATIGUE [None]
  - HEADACHE [None]
  - NAUSEA [None]
  - SLUGGISHNESS [None]
